FAERS Safety Report 11857663 (Version 1)
Quarter: 2015Q4

REPORT INFORMATION
  Report Type: Spontaneous
  Country: US (occurrence: None)
  Receive Date: 20151221
  Receipt Date: 20151221
  Transmission Date: 20160305
  Serious: Yes (Other)
  Sender: FDA-Public Use
  Company Number: None

PATIENT
  Age: 68 Year
  Sex: Female

DRUGS (1)
  1. TARGRETIN [Suspect]
     Active Substance: BEXAROTENE
     Indication: PRODUCT USED FOR UNKNOWN INDICATION
     Dosage: DOSE FORM: ORAL
     Route: 048
     Dates: start: 201511

REACTIONS (2)
  - Thyroid hormones decreased [None]
  - Blood triglycerides increased [None]

NARRATIVE: CASE EVENT DATE: 20151218
